FAERS Safety Report 6523096-X (Version None)
Quarter: 2009Q4

REPORT INFORMATION
  Report Type: 
  Country: None (occurrence: None)
  Receive Date: 20091222
  Receipt Date: 20091222
  Transmission Date: 20100525
  Serious: Yes (Life-Threatening, Hospitalization, Other)
  Sender: FDA-Public Use
  Company Number: DE-1171129

PATIENT
  Age: 78 Year
  Sex: Female

DRUGS (7)
  1. FLUORESCEIN SODIUM [Suspect]
     Dosage: [1] 5 ML
     Route: 040
     Dates: start: 20090929, end: 20090929
  2. HYDROCHLOROTHIAZIDE [Concomitant]
  3. ASPIRIN [Concomitant]
  4. LISI LICH (LISINOPRIL) [Concomitant]
  5. LERCANIDIPINE [Concomitant]
  6. PROPAFENON (PROPAFENONE) [Concomitant]
  7. OMEPRAZOLE [Concomitant]

REACTIONS (6)
  - BLOOD PRESSURE DECREASED [None]
  - CARDIAC ARREST [None]
  - DIZZINESS [None]
  - HYPERHIDROSIS [None]
  - LOSS OF CONSCIOUSNESS [None]
  - VERTIGO [None]
